FAERS Safety Report 23173701 (Version 1)
Quarter: 2023Q4

REPORT INFORMATION
  Report Type: Spontaneous
  Country: ES (occurrence: ES)
  Receive Date: 20231111
  Receipt Date: 20231111
  Transmission Date: 20240110
  Serious: Yes (Hospitalization, Other)
  Sender: FDA-Public Use
  Company Number: ES-AMGEN-ESPSP2023197420

PATIENT
  Age: 71 Year
  Sex: Male

DRUGS (5)
  1. BEVACIZUMAB [Suspect]
     Active Substance: BEVACIZUMAB
     Indication: Rectal adenocarcinoma
     Dosage: 9 CYCLES + 3 CYCLES
     Route: 065
  2. CAPECITABINE [Concomitant]
     Active Substance: CAPECITABINE
     Indication: Rectal adenocarcinoma
     Dosage: 3 CYCLES
  3. FLUOROURACIL\LEUCOVORIN CALCIUM\OXALIPLATIN [Concomitant]
     Active Substance: FLUOROURACIL\LEUCOVORIN CALCIUM\OXALIPLATIN
     Indication: Rectal adenocarcinoma
     Dosage: 9 CYCLES
  4. FLUOROURACIL\IRINOTECAN\LEUCOVORIN [Concomitant]
     Active Substance: FLUOROURACIL\IRINOTECAN\LEUCOVORIN
     Indication: Rectal adenocarcinoma
     Dosage: 4 CYCLES
     Route: 065
  5. CETUXIMAB [Concomitant]
     Active Substance: CETUXIMAB
     Indication: Rectal adenocarcinoma
     Dosage: 4 CYCLES
     Route: 065

REACTIONS (5)
  - Pneumonia [Recovering/Resolving]
  - Pulmonary nocardiosis [Unknown]
  - Scedosporium infection [Recovering/Resolving]
  - Skin infection [Recovering/Resolving]
  - Rectal adenocarcinoma [Unknown]
